FAERS Safety Report 9739589 (Version 2)
Quarter: 2013Q4

REPORT INFORMATION
  Report Type: Spontaneous
  Country: US (occurrence: US)
  Receive Date: 20131209
  Receipt Date: 20131216
  Transmission Date: 20140711
  Serious: Yes (Other)
  Sender: FDA-Public Use
  Company Number: US-BAXTER-2013BAX048370

PATIENT
  Age: 53 Year
  Sex: Male

DRUGS (2)
  1. DIANEAL LOW CALCIUM [Suspect]
     Indication: RENAL FAILURE CHRONIC
     Route: 033
     Dates: start: 20120917
  2. DIANEAL LOW CALCIUM [Suspect]
     Dosage: LOW FILL VOLUMES
     Route: 033

REACTIONS (2)
  - Pulmonary oedema [Unknown]
  - Pleural effusion [Recovering/Resolving]
